FAERS Safety Report 14070638 (Version 2)
Quarter: 2018Q1

REPORT INFORMATION
  Report Type: Report from Study
  Country: US (occurrence: US)
  Receive Date: 20171011
  Receipt Date: 20180305
  Transmission Date: 20180508
  Serious: Yes (Hospitalization)
  Sender: FDA-Public Use
  Company Number: US-ROCHE-2003481

PATIENT
  Age: 79 Year
  Sex: Male
  Weight: 67.19 kg

DRUGS (4)
  1. LEUKERAN [Concomitant]
     Active Substance: CHLORAMBUCIL
     Dosage: UNKNOWN
     Route: 065
  2. COUMADIN [Concomitant]
     Active Substance: WARFARIN SODIUM
  3. GAZYVA [Suspect]
     Active Substance: OBINUTUZUMAB
     Indication: CHRONIC LYMPHOCYTIC LEUKAEMIA
     Route: 042
     Dates: start: 20170731
  4. GAZYVA [Suspect]
     Active Substance: OBINUTUZUMAB
     Indication: LYMPHOMA
     Route: 042
     Dates: start: 201710

REACTIONS (9)
  - Neutropenia [Unknown]
  - Body temperature increased [Unknown]
  - Pneumonia [Unknown]
  - Vomiting [Unknown]
  - Hair disorder [Unknown]
  - Chills [Unknown]
  - Pyrexia [Unknown]
  - Gingival bleeding [Unknown]
  - Aspiration [Unknown]

NARRATIVE: CASE EVENT DATE: 20170731
